FAERS Safety Report 25253496 (Version 1)
Quarter: 2025Q2

REPORT INFORMATION
  Report Type: Spontaneous
  Country: US (occurrence: US)
  Receive Date: 20250430
  Receipt Date: 20250430
  Transmission Date: 20250717
  Serious: Yes (Other)
  Sender: STRIDES
  Company Number: US-STRIDES ARCOLAB LIMITED-2025SP005105

PATIENT
  Age: 79 Year
  Sex: Female

DRUGS (6)
  1. PREDNISOLONE [Suspect]
     Active Substance: PREDNISOLONE
     Indication: Eosinophilic colitis
     Route: 065
  2. METHYLPREDNISOLONE [Suspect]
     Active Substance: METHYLPREDNISOLONE
     Indication: Eosinophilic colitis
     Route: 065
  3. BUDESONIDE [Concomitant]
     Active Substance: BUDESONIDE
     Indication: Eosinophilic colitis
     Route: 065
  4. CHOLESTYRAMINE [Concomitant]
     Active Substance: CHOLESTYRAMINE
     Indication: Eosinophilic colitis
     Route: 065
  5. RIFAXIMIN [Concomitant]
     Active Substance: RIFAXIMIN
     Indication: Drug therapy
     Route: 065
  6. POTASSIUM CHLORIDE [Concomitant]
     Active Substance: POTASSIUM CHLORIDE
     Indication: Hypokalaemia
     Route: 065

REACTIONS (2)
  - Colitis [Recovered/Resolved]
  - Drug ineffective for unapproved indication [Unknown]
